FAERS Safety Report 7488456-1 (Version None)
Quarter: 2011Q2

REPORT INFORMATION
  Report Type: 
  Country: None (occurrence: None)
  Receive Date: 20110518
  Receipt Date: 20110513
  Transmission Date: 20111010
  Serious: Yes (Death)
  Sender: FDA-Public Use
  Company Number: PHHY2010MX33811

PATIENT
  Sex: Female

DRUGS (1)
  1. FEMARA [Suspect]
     Indication: NEOPLASM MALIGNANT
     Dosage: 2.5 MG DAILY
     Dates: start: 20070101

REACTIONS (3)
  - DISEASE PROGRESSION [None]
  - ASPIRATION BRONCHIAL [None]
  - NEOPLASM MALIGNANT [None]
